FAERS Safety Report 9436122 (Version 1)
Quarter: 2013Q3

REPORT INFORMATION
  Report Type: Spontaneous
  Country: US (occurrence: US)
  Receive Date: 20130801
  Receipt Date: 20130801
  Transmission Date: 20140515
  Serious: Yes (Disabling)
  Sender: FDA-Public Use
  Company Number: US-PFIZER INC-2013224563

PATIENT
  Age: 43 Year
  Sex: Male
  Weight: 63.49 kg

DRUGS (2)
  1. CELEBREX [Suspect]
     Indication: ARTHRITIS
     Dosage: 200 MG, 3X/DAY
  2. CELEBREX [Suspect]
     Indication: MUSCLE SPASMS

REACTIONS (1)
  - Neck injury [Unknown]
